FAERS Safety Report 25464712 (Version 1)
Quarter: 2025Q2

REPORT INFORMATION
  Report Type: Spontaneous
  Country: US (occurrence: US)
  Receive Date: 20250622
  Receipt Date: 20250622
  Transmission Date: 20250717
  Serious: No
  Sender: ELI LILLY AND COMPANY
  Company Number: US-ELI_LILLY_AND_COMPANY-US202506009975

PATIENT
  Age: 60 Year
  Sex: Female

DRUGS (1)
  1. ZEPBOUND [Suspect]
     Active Substance: TIRZEPATIDE
     Indication: Weight control
     Dosage: 7.5 MG, WEEKLY (1/W)
     Route: 058
     Dates: start: 20250131

REACTIONS (9)
  - Flushing [Recovering/Resolving]
  - Chest discomfort [Recovering/Resolving]
  - Feeling hot [Recovering/Resolving]
  - Tremor [Recovering/Resolving]
  - Feeling jittery [Recovering/Resolving]
  - Abdominal pain upper [Recovering/Resolving]
  - Flatulence [Recovering/Resolving]
  - Eructation [Recovering/Resolving]
  - Nausea [Recovering/Resolving]

NARRATIVE: CASE EVENT DATE: 20250524
